FAERS Safety Report 21125548 (Version 3)
Quarter: 2023Q1

REPORT INFORMATION
  Report Type: Report from Study
  Country: GB (occurrence: GB)
  Receive Date: 20220725
  Receipt Date: 20230127
  Transmission Date: 20230418
  Serious: Yes (Hospitalization)
  Sender: FDA-Public Use
  Company Number: GB-Merck Healthcare KGaA-9337451

PATIENT
  Age: 46 Year
  Sex: Male
  Weight: 83 kg

DRUGS (72)
  1. OXALIPLATIN [Suspect]
     Active Substance: OXALIPLATIN
     Indication: Oesophageal adenocarcinoma
     Dosage: 180 MG
     Route: 042
     Dates: start: 20220621
  2. OXALIPLATIN [Suspect]
     Active Substance: OXALIPLATIN
     Dosage: 180 MG
     Route: 042
     Dates: start: 20220713
  3. AVELUMAB [Suspect]
     Active Substance: AVELUMAB
     Indication: Oesophageal adenocarcinoma
     Dosage: 832 MG
     Route: 042
     Dates: start: 20220621
  4. LEUCOVORIN CALCIUM [Suspect]
     Active Substance: LEUCOVORIN CALCIUM
     Indication: Oesophageal adenocarcinoma
     Dosage: 420 MG
     Route: 042
     Dates: start: 20220621
  5. LEUCOVORIN CALCIUM [Suspect]
     Active Substance: LEUCOVORIN CALCIUM
     Dosage: 420 MG
     Route: 042
     Dates: start: 20220713
  6. DOCETAXEL [Suspect]
     Active Substance: DOCETAXEL
     Indication: Oesophageal adenocarcinoma
     Dosage: 110 MG
     Route: 042
     Dates: start: 20220317
  7. FLUOROURACIL [Suspect]
     Active Substance: FLUOROURACIL
     Indication: Oesophageal adenocarcinoma
     Dosage: 5650 MG
     Route: 042
     Dates: start: 20220317
  8. OMEPRAZOLE [Concomitant]
     Active Substance: OMEPRAZOLE
     Indication: Gastritis prophylaxis
     Dosage: 40 MG, 1X/DAY
     Route: 048
  9. CITALOPRAM [Concomitant]
     Active Substance: CITALOPRAM HYDROBROMIDE
     Indication: Anxiety
     Dosage: 20 MG, 1X/DAY
     Route: 048
  10. DIAZEPAM [Concomitant]
     Active Substance: DIAZEPAM
     Dosage: UNK, 1X/DAY
     Route: 048
  11. ONDANSETRON [Concomitant]
     Active Substance: ONDANSETRON
     Dosage: 8 MG
     Route: 042
     Dates: start: 20220203, end: 20220203
  12. ONDANSETRON [Concomitant]
     Active Substance: ONDANSETRON
     Dosage: 8 MG, 2X/DAY
     Route: 048
     Dates: start: 20220203, end: 20220206
  13. ONDANSETRON [Concomitant]
     Active Substance: ONDANSETRON
     Dosage: 8 MG
     Route: 042
     Dates: start: 20220217, end: 20220217
  14. ONDANSETRON [Concomitant]
     Active Substance: ONDANSETRON
     Dosage: 8 MG, 2X/DAY
     Route: 048
     Dates: start: 20220217, end: 20220220
  15. ONDANSETRON [Concomitant]
     Active Substance: ONDANSETRON
     Dosage: 8 MG
     Route: 042
     Dates: start: 20220303, end: 20220303
  16. ONDANSETRON [Concomitant]
     Active Substance: ONDANSETRON
     Dosage: 8 MG
     Route: 048
     Dates: start: 20220303, end: 20220306
  17. ONDANSETRON [Concomitant]
     Active Substance: ONDANSETRON
     Dosage: 8 MG
     Route: 042
     Dates: start: 20220317, end: 20220317
  18. ONDANSETRON [Concomitant]
     Active Substance: ONDANSETRON
     Dosage: 8 MG
     Route: 048
     Dates: start: 20220317, end: 20220320
  19. ONDANSETRON [Concomitant]
     Active Substance: ONDANSETRON
     Dosage: 8 MG
     Route: 042
     Dates: start: 20220621, end: 20220621
  20. ACETAMINOPHEN [Concomitant]
     Active Substance: ACETAMINOPHEN
     Indication: Chills
     Dosage: 1000 MG
     Route: 048
     Dates: start: 20220203, end: 20220203
  21. ACETAMINOPHEN [Concomitant]
     Active Substance: ACETAMINOPHEN
     Dosage: 1000 MG
     Route: 048
     Dates: start: 20220217, end: 20220217
  22. ACETAMINOPHEN [Concomitant]
     Active Substance: ACETAMINOPHEN
     Dosage: 1000 MG
     Route: 048
     Dates: start: 20220203, end: 20220203
  23. ACETAMINOPHEN [Concomitant]
     Active Substance: ACETAMINOPHEN
     Dosage: 1000 MG
     Route: 048
     Dates: start: 20220317, end: 20220317
  24. ACETAMINOPHEN [Concomitant]
     Active Substance: ACETAMINOPHEN
     Dosage: 1000 MG
     Route: 048
     Dates: start: 20220621, end: 20220621
  25. ACETAMINOPHEN [Concomitant]
     Active Substance: ACETAMINOPHEN
     Dosage: 1 G
     Route: 042
     Dates: start: 20220621, end: 20220621
  26. CHLORPHENIRAMINE MALEATE [Concomitant]
     Active Substance: CHLORPHENIRAMINE MALEATE
     Dosage: 10 MG
     Route: 042
     Dates: start: 20220203, end: 20220203
  27. CHLORPHENIRAMINE MALEATE [Concomitant]
     Active Substance: CHLORPHENIRAMINE MALEATE
     Dosage: 10 MG
     Route: 042
     Dates: start: 20220217, end: 20220217
  28. CHLORPHENIRAMINE MALEATE [Concomitant]
     Active Substance: CHLORPHENIRAMINE MALEATE
     Dosage: 10 MG
     Route: 042
     Dates: start: 20220303, end: 20220303
  29. CHLORPHENIRAMINE MALEATE [Concomitant]
     Active Substance: CHLORPHENIRAMINE MALEATE
     Dosage: 10 MG
     Route: 042
     Dates: start: 20220317, end: 20220317
  30. CHLORPHENIRAMINE MALEATE [Concomitant]
     Active Substance: CHLORPHENIRAMINE MALEATE
     Dosage: 10 MG
     Route: 042
     Dates: start: 20220621, end: 20220621
  31. CHLORPHENIRAMINE MALEATE [Concomitant]
     Active Substance: CHLORPHENIRAMINE MALEATE
     Dosage: UNK
  32. CHLORPHENIRAMINE MALEATE [Concomitant]
     Active Substance: CHLORPHENIRAMINE MALEATE
     Dosage: UNK
  33. SODIUM CHLORIDE [Concomitant]
     Active Substance: SODIUM CHLORIDE
     Dosage: 0.9%
     Route: 042
     Dates: start: 20220203, end: 20220203
  34. SODIUM CHLORIDE [Concomitant]
     Active Substance: SODIUM CHLORIDE
     Dosage: 0.9%
     Route: 042
     Dates: start: 20220217, end: 20220217
  35. SODIUM CHLORIDE [Concomitant]
     Active Substance: SODIUM CHLORIDE
     Dosage: 0.9%
     Route: 042
     Dates: start: 20220303, end: 20220303
  36. SODIUM CHLORIDE [Concomitant]
     Active Substance: SODIUM CHLORIDE
     Dosage: 0.9%
     Route: 042
     Dates: start: 20220317, end: 20220317
  37. SODIUM CHLORIDE [Concomitant]
     Active Substance: SODIUM CHLORIDE
     Dosage: 0.9%
     Route: 042
     Dates: start: 20220621, end: 20220621
  38. DEXAMETHASONE [Concomitant]
     Active Substance: DEXAMETHASONE
     Dosage: 8 MG
     Route: 042
     Dates: start: 20220203, end: 20220203
  39. DEXAMETHASONE [Concomitant]
     Active Substance: DEXAMETHASONE
     Dosage: 4 MG, 2X/DAY
     Route: 048
     Dates: start: 20220203, end: 20220206
  40. DEXAMETHASONE [Concomitant]
     Active Substance: DEXAMETHASONE
     Dosage: 8 MG
     Route: 042
     Dates: start: 20220217, end: 20220217
  41. DEXAMETHASONE [Concomitant]
     Active Substance: DEXAMETHASONE
     Dosage: 4 MG, 2X/DAY
     Route: 048
     Dates: start: 20220217, end: 20220220
  42. DEXAMETHASONE [Concomitant]
     Active Substance: DEXAMETHASONE
     Dosage: 8 MG
     Route: 042
     Dates: start: 20220303, end: 20220303
  43. DEXAMETHASONE [Concomitant]
     Active Substance: DEXAMETHASONE
     Dosage: 4 MG, 2X/DAY
     Route: 048
     Dates: start: 20220303, end: 20220306
  44. DEXAMETHASONE [Concomitant]
     Active Substance: DEXAMETHASONE
     Dosage: 8 MG
     Route: 042
     Dates: start: 20220317, end: 20220317
  45. DEXAMETHASONE [Concomitant]
     Active Substance: DEXAMETHASONE
     Dosage: 4 MG, 2X/DAY
     Route: 048
     Dates: start: 20220317, end: 20220320
  46. DEXAMETHASONE [Concomitant]
     Active Substance: DEXAMETHASONE
     Dosage: 8 MG
     Route: 042
     Dates: start: 20220621, end: 20220621
  47. DEXTROSE [Concomitant]
     Active Substance: DEXTROSE
     Dosage: 5%
     Route: 042
     Dates: start: 20220203, end: 20220203
  48. DEXTROSE [Concomitant]
     Active Substance: DEXTROSE
     Dosage: 5%
     Route: 042
     Dates: start: 20220217, end: 20220217
  49. DEXTROSE [Concomitant]
     Active Substance: DEXTROSE
     Dosage: 5%
     Route: 042
     Dates: start: 20220303, end: 20220303
  50. DEXTROSE [Concomitant]
     Active Substance: DEXTROSE
     Dosage: 5%
     Route: 042
     Dates: start: 20220317, end: 20220317
  51. DEXTROSE [Concomitant]
     Active Substance: DEXTROSE
     Dosage: 5%
     Route: 042
     Dates: start: 20220621, end: 20220621
  52. FILGRASTIM [Concomitant]
     Active Substance: FILGRASTIM
     Dosage: 480 UG, 1X/DAY
     Route: 058
     Dates: start: 20220209, end: 20220211
  53. FILGRASTIM [Concomitant]
     Active Substance: FILGRASTIM
     Dosage: 480 UG, 1X/DAY
     Route: 058
     Dates: start: 20220221, end: 20220223
  54. FILGRASTIM [Concomitant]
     Active Substance: FILGRASTIM
     Dosage: 480 UG, 1X/DAY
     Route: 058
     Dates: start: 20220303, end: 20220303
  55. FILGRASTIM [Concomitant]
     Active Substance: FILGRASTIM
     Dosage: 480 UG, 1X/DAY
     Route: 058
     Dates: start: 20220321, end: 20220325
  56. LOPERAMIDE [Concomitant]
     Active Substance: LOPERAMIDE
     Dosage: 2 MG
     Route: 048
     Dates: start: 20220203
  57. CHLORHEXIDINE GLUCONATE [Concomitant]
     Active Substance: CHLORHEXIDINE GLUCONATE
     Dosage: 0.2%
     Dates: start: 20220203
  58. FOSAPREPITANT [Concomitant]
     Active Substance: FOSAPREPITANT
     Dosage: 150 MG
     Route: 042
     Dates: start: 20220217, end: 20220217
  59. FOSAPREPITANT [Concomitant]
     Active Substance: FOSAPREPITANT
     Dosage: 150 MG
     Route: 042
     Dates: start: 20220303, end: 20220303
  60. FOSAPREPITANT [Concomitant]
     Active Substance: FOSAPREPITANT
     Dosage: 150 MG
     Route: 042
     Dates: start: 20220621, end: 20220621
  61. METOCLOPRAMIDE [Concomitant]
     Active Substance: METOCLOPRAMIDE
     Indication: Nausea
     Dosage: 10 MG
     Route: 048
     Dates: start: 20220217
  62. METOCLOPRAMIDE [Concomitant]
     Active Substance: METOCLOPRAMIDE
     Dosage: 10 MG
     Route: 042
     Dates: start: 20220621, end: 20220621
  63. MAGNESIUM ASPARTATE [Concomitant]
     Active Substance: MAGNESIUM ASPARTATE
     Indication: Hypomagnesaemia
     Dosage: UNK, 2X/DAY
     Route: 048
     Dates: start: 20220317, end: 20220324
  64. DOXYCYCLINE [Concomitant]
     Active Substance: DOXYCYCLINE
     Dosage: 100 MG, 2X/DAY
     Route: 048
  65. CIPROFLOXACIN [Concomitant]
     Active Substance: CIPROFLOXACIN
     Indication: Pyrexia
     Dosage: UNK
     Route: 042
     Dates: start: 20220318, end: 20220320
  66. CIPROFLOXACIN [Concomitant]
     Active Substance: CIPROFLOXACIN
     Dosage: 500 MG, 2X/DAY
     Route: 048
     Dates: start: 20220320, end: 20220325
  67. TEICOPLANIN [Concomitant]
     Active Substance: TEICOPLANIN
     Indication: Pyrexia
     Dosage: UNK
     Route: 042
     Dates: start: 20220318, end: 20220320
  68. OXYCODONE [Concomitant]
     Active Substance: OXYCODONE
     Dosage: UNK
  69. HYDROCORTISONE [Concomitant]
     Active Substance: HYDROCORTISONE
     Dosage: 100 MG
     Route: 042
     Dates: start: 20220621, end: 20220621
  70. ALBUTEROL [Concomitant]
     Active Substance: ALBUTEROL
     Dosage: UNK
     Dates: start: 20220621, end: 20220621
  71. CEFTAZIDIME [Concomitant]
     Active Substance: CEFTAZIDIME
     Dosage: UNK
     Route: 042
     Dates: start: 20220621, end: 20220621
  72. VANCOMYCIN [Concomitant]
     Active Substance: VANCOMYCIN
     Dosage: UNK
     Route: 042
     Dates: start: 20220621, end: 20220621

REACTIONS (1)
  - Hypersensitivity [Recovered/Resolved]

NARRATIVE: CASE EVENT DATE: 20220713
